FAERS Safety Report 8603195 (Version 2)
Quarter: 2013Q3

REPORT INFORMATION
  Report Type: Spontaneous
  Country: US (occurrence: US)
  Receive Date: 20120607
  Receipt Date: 20130813
  Transmission Date: 20140515
  Serious: Yes (Hospitalization)
  Sender: FDA-Public Use
  Company Number: US-GLAXOSMITHKLINE-A0898142A

PATIENT
  Sex: Female
  Weight: 107.7 kg

DRUGS (8)
  1. AVANDIA [Suspect]
     Indication: DIABETES MELLITUS
     Dosage: 4MG PER DAY
     Route: 048
     Dates: start: 20000919, end: 200401
  2. MONOPRIL [Concomitant]
  3. GLUCOTROL XL [Concomitant]
  4. LIPITOR [Concomitant]
  5. METHOTREXATE [Concomitant]
  6. PLAQUENIL [Concomitant]
  7. VIOXX [Concomitant]
  8. HCTZ [Concomitant]

REACTIONS (3)
  - Cardiac failure congestive [Unknown]
  - Cardiovascular disorder [Unknown]
  - Cardiac disorder [Unknown]
